FAERS Safety Report 22070441 (Version 1)
Quarter: 2023Q1

REPORT INFORMATION
  Report Type: Report from Study
  Country: GR (occurrence: GR)
  Receive Date: 20230307
  Receipt Date: 20230307
  Transmission Date: 20230418
  Serious: Yes (Hospitalization, Other)
  Sender: FDA-Public Use
  Company Number: GR-ABBVIE-4329115

PATIENT
  Age: 70 Year
  Sex: Female

DRUGS (2)
  1. CARBIDOPA\LEVODOPA [Suspect]
     Active Substance: CARBIDOPA\LEVODOPA
     Indication: Parkinson^s disease
     Dosage: MORNING DOSE: 9.0ML; CONTINUOUS RATE: 3.7ML/H; EXTRA DOSE: 2.0ML (24-HOUR ADMINISTRATION))
     Route: 050
     Dates: start: 20211214
  2. CARBIDOPA\LEVODOPA [Suspect]
     Active Substance: CARBIDOPA\LEVODOPA

REACTIONS (5)
  - Hip fracture [Recovering/Resolving]
  - Limb discomfort [Recovered/Resolved]
  - Walking aid user [Recovering/Resolving]
  - Balance disorder [Recovered/Resolved]
  - Fall [Recovered/Resolved]

NARRATIVE: CASE EVENT DATE: 20230201
